FAERS Safety Report 4583054-1 (Version None)
Quarter: 2005Q1

REPORT INFORMATION
  Report Type: 
  Country: None (occurrence: None)
  Receive Date: 20050125
  Receipt Date: 20041115
  Transmission Date: 20050727
  Serious: No
  Sender: FDA-Public Use
  Company Number: US_0411108420

PATIENT
  Sex: 0

DRUGS (2)
  1. FORTEO [Suspect]
     Dates: start: 20041113
  2. SALINE (SODIUM CHLORIDE) [Suspect]
     Dates: start: 20041113

REACTIONS (1)
  - MEDICATION ERROR [None]
